FAERS Safety Report 10523926 (Version 2)
Quarter: 2014Q4

REPORT INFORMATION
  Report Type: Spontaneous
  Country: US (occurrence: US)
  Receive Date: 20141017
  Receipt Date: 20141017
  Transmission Date: 20150528
  Serious: No
  Sender: FDA-Public Use
  Company Number: US-ASTRAZENECA-2014SE69877

PATIENT
  Sex: Male

DRUGS (3)
  1. PULMICORT FLEXHALER [Suspect]
     Active Substance: BUDESONIDE
     Indication: ASTHMA
     Dosage: 2 PUFFS, TWO TIMES A DAY
     Route: 055
  2. PULMICORT FLEXHALER [Suspect]
     Active Substance: BUDESONIDE
     Indication: ASTHMA
     Dosage: 1 PUFFS, TWO TIMES A DAY
     Route: 055
  3. ALBUTEROL. [Concomitant]
     Active Substance: ALBUTEROL
     Dosage: NOT REPORTED

REACTIONS (5)
  - Salivary hypersecretion [Unknown]
  - Malaise [Unknown]
  - Increased upper airway secretion [Unknown]
  - Intentional product misuse [Unknown]
  - Drug ineffective [Unknown]
